FAERS Safety Report 7281378-0 (Version None)
Quarter: 2011Q1

REPORT INFORMATION
  Report Type: 
  Country: None (occurrence: None)
  Receive Date: 20110203
  Receipt Date: 20110203
  Transmission Date: 20110831
  Serious: Yes (Hospitalization, Other)
  Sender: FDA-Public Use
  Company Number: None

PATIENT
  Age: 46 Year
  Sex: Female
  Weight: 81.6475 kg

DRUGS (2)
  1. SUDAFED PE SEVERE COLD MULTIPLE PFIZER [Suspect]
     Indication: SINUS CONGESTION
     Dosage: 2 TABLETS 4 TIMES A DAY PO
     Route: 048
     Dates: start: 20110131, end: 20110131
  2. SUDAFED PE SEVERE COLD MULTIPLE PFIZER [Suspect]
     Indication: OROPHARYNGEAL PAIN
     Dosage: 2 TABLETS 4 TIMES A DAY PO
     Route: 048
     Dates: start: 20110131, end: 20110131

REACTIONS (7)
  - HEART RATE INCREASED [None]
  - INSOMNIA [None]
  - CHEST DISCOMFORT [None]
  - DIZZINESS [None]
  - DYSPNOEA [None]
  - NERVOUSNESS [None]
  - TREMOR [None]
